FAERS Safety Report 6064952 (Version 17)
Quarter: 2013Q4

REPORT INFORMATION
  Report Type: Spontaneous
  Country: US (occurrence: US)
  Receive Date: 20060614
  Receipt Date: 20131107
  Transmission Date: 20140711
  Serious: Yes (Other)
  Sender: FDA-Public Use
  Company Number: US-ROCHE-450689

PATIENT
  Age: 37 Year
  Sex: Female
  Weight: 56.7 kg

DRUGS (1)
  1. ACCUTANE [Suspect]
     Indication: ACNE CYSTIC
     Route: 048
     Dates: start: 19910809, end: 19911204

REACTIONS (21)
  - Colitis ulcerative [Recovering/Resolving]
  - Proctitis [Unknown]
  - Colitis [Unknown]
  - Proctitis ulcerative [Unknown]
  - Breast prosthesis removal [Unknown]
  - Fungal infection [Unknown]
  - Depression [Not Recovered/Not Resolved]
  - Anxiety [Not Recovered/Not Resolved]
  - Panic attack [Unknown]
  - Haemorrhoids [Unknown]
  - Dry eye [Unknown]
  - Lip dry [Unknown]
  - Nasal dryness [Unknown]
  - Epistaxis [Unknown]
  - Eczema [Unknown]
  - Haematuria [Unknown]
  - Breast cyst [Unknown]
  - Mitral valve prolapse [Unknown]
  - Ovarian cyst [Unknown]
  - Fibroadenoma of breast [Unknown]
  - Gastroenteritis viral [Recovering/Resolving]
